FAERS Safety Report 11148781 (Version 3)
Quarter: 2015Q3

REPORT INFORMATION
  Report Type: Report from Study
  Country: US (occurrence: US)
  Receive Date: 20150529
  Receipt Date: 20150826
  Transmission Date: 20151125
  Serious: Yes (Death, Hospitalization)
  Sender: FDA-Public Use
  Company Number: US-EISAI MEDICAL RESEARCH-E7080-01037-CLI-US

PATIENT
  Age: 68 Year
  Sex: Female
  Weight: 58 kg

DRUGS (27)
  1. LENVATINIB [Suspect]
     Active Substance: LENVATINIB
     Route: 048
     Dates: start: 20140113, end: 20150524
  2. CALCIUM D [Concomitant]
     Active Substance: CALCIUM\VITAMIN D
  3. NORVASC [Concomitant]
     Active Substance: AMLODIPINE BESYLATE
     Route: 048
  4. SUCCINATE [Concomitant]
     Route: 048
  5. MELATONIN [Concomitant]
     Active Substance: MELATONIN
  6. LENVATINIB [Suspect]
     Active Substance: LENVATINIB
     Indication: THYROID CANCER
     Dosage: 24 MG DAILY AND TITRATED DOWN
     Route: 048
     Dates: start: 20100203, end: 2010
  7. LENVATINIB [Suspect]
     Active Substance: LENVATINIB
     Route: 048
     Dates: start: 20100729, end: 20120924
  8. LENVATINIB [Suspect]
     Active Substance: LENVATINIB
     Route: 048
     Dates: start: 20121019, end: 20140111
  9. LASIX [Concomitant]
     Active Substance: FUROSEMIDE
     Indication: PERIPHERAL SWELLING
     Route: 048
  10. METOPROLOL [Concomitant]
     Active Substance: METOPROLOL
     Route: 048
  11. MEPERIDINE SYRINGE [Concomitant]
  12. IMODIUM [Concomitant]
     Active Substance: LOPERAMIDE HYDROCHLORIDE
  13. MILK OF MAGNESIA [Concomitant]
     Active Substance: MAGNESIUM HYDROXIDE
  14. TIMOLOL MALEATE. [Concomitant]
     Active Substance: TIMOLOL MALEATE
  15. AY SALINE NASAL GEL [Concomitant]
  16. SYNTHROID [Concomitant]
     Active Substance: LEVOTHYROXINE SODIUM
  17. PANTOPRAZOLE [Concomitant]
     Active Substance: PANTOPRAZOLE SODIUM
  18. ONDANSETRON [Concomitant]
     Active Substance: ONDANSETRON
  19. SYSTANE EYE LUBRICANT DROPS [Concomitant]
  20. LISINOPRIL. [Concomitant]
     Active Substance: LISINOPRIL
  21. LORATADINE. [Concomitant]
     Active Substance: LORATADINE
  22. CEPHALEXIN. [Concomitant]
     Active Substance: CEPHALEXIN
  23. THYROID [Concomitant]
     Active Substance: LEVOTHYROXINE\LIOTHYRONINE
     Indication: HYPERTHYROIDISM
     Route: 048
  24. RESTASIS [Concomitant]
     Active Substance: CYCLOSPORINE
  25. POTASSIUM CHLORIDE. [Concomitant]
     Active Substance: POTASSIUM CHLORIDE
     Indication: HYPOKALAEMIA
     Route: 048
  26. ALPHAGAN P [Concomitant]
     Active Substance: BRIMONIDINE TARTRATE
  27. DILTIAZEM [Concomitant]
     Active Substance: DILTIAZEM

REACTIONS (6)
  - Hypotension [Recovered/Resolved]
  - Atrial fibrillation [Recovered/Resolved]
  - Myocardial infarction [Fatal]
  - Dehydration [Recovered/Resolved]
  - Drug hypersensitivity [Recovered/Resolved]
  - Cardiac failure congestive [Recovered/Resolved]

NARRATIVE: CASE EVENT DATE: 20111007
